FAERS Safety Report 5106785-3 (Version None)
Quarter: 2006Q3

REPORT INFORMATION
  Report Type: 
  Country: None (occurrence: None)
  Receive Date: 20060731
  Receipt Date: 20051102
  Transmission Date: 20061208
  Serious: Yes (Other)
  Sender: FDA-Public Use
  Company Number: US-JNJFOC-20050806489

PATIENT
  Age: 49 Year
  Sex: Female
  Weight: 72.5755 kg

DRUGS (5)
  1. RISPERDAL [Suspect]
     Indication: OBSESSIVE THOUGHTS
     Dosage: 0.5 MG, ORAL
     Route: 048
     Dates: start: 20041101
  2. WELLBUTRIN [Concomitant]
  3. NEURONTIN [Concomitant]
  4. XANAX LR (ALPRAZOLAM) [Concomitant]
  5. LUVOX [Concomitant]

REACTIONS (1)
  - TRISMUS [None]
